FAERS Safety Report 5284591-7 (Version None)
Quarter: 2007Q1

REPORT INFORMATION
  Report Type: 
  Country: None (occurrence: None)
  Receive Date: 20061215
  Receipt Date: 20060421
  Transmission Date: 20070707
  Serious: Yes (Hospitalization)
  Sender: FDA-Public Use
  Company Number: HQWYE936324APR06

PATIENT
  Sex: 0

DRUGS (2)
  1. EFFEXOR XR [Suspect]
     Dosage: 150 MG ORAL
     Route: 048
  2. SEROQUEL [Concomitant]

REACTIONS (1)
  - PETIT MAL EPILEPSY [None]
